FAERS Safety Report 10951884 (Version 1)
Quarter: 2015Q1

REPORT INFORMATION
  Report Type: Report from Study
  Country: US (occurrence: US)
  Receive Date: 20150325
  Receipt Date: 20150325
  Transmission Date: 20150721
  Serious: No
  Sender: FDA-Public Use
  Company Number: US-ORION CORPORATION ORION PHARMA-ENT 2011-0263

PATIENT
  Age: 70 Year
  Sex: Female

DRUGS (13)
  1. COREG [Suspect]
     Active Substance: CARVEDILOL
     Indication: BLOOD PRESSURE ABNORMAL
     Route: 065
  2. SINEMET [Concomitant]
     Active Substance: CARBIDOPA\LEVODOPA
     Route: 065
  3. ARIMIDEX [Concomitant]
     Active Substance: ANASTROZOLE
     Route: 065
  4. COREG [Suspect]
     Active Substance: CARVEDILOL
     Route: 065
  5. COREG [Suspect]
     Active Substance: CARVEDILOL
     Route: 065
  6. COMTAN [Suspect]
     Active Substance: ENTACAPONE
     Route: 048
     Dates: start: 20120713
  7. COREG [Suspect]
     Active Substance: CARVEDILOL
     Route: 065
  8. CINAMET [Concomitant]
     Route: 065
  9. IMODIUM [Concomitant]
     Active Substance: LOPERAMIDE HYDROCHLORIDE
     Route: 065
  10. COMTAN [Suspect]
     Active Substance: ENTACAPONE
     Route: 065
  11. LEVODOPA-CARBIDOPA [Concomitant]
     Active Substance: CARBIDOPA\LEVODOPA
     Dosage: STRENGTH: 25/100 MG
     Route: 065
  12. ERGOCALCIFEROL. [Concomitant]
     Active Substance: ERGOCALCIFEROL
     Route: 065
  13. VITAMIN D [Concomitant]
     Active Substance: CHOLECALCIFEROL
     Route: 065

REACTIONS (8)
  - Dysphagia [Unknown]
  - Wrong technique in drug usage process [Unknown]
  - Product quality issue [Unknown]
  - Foreign body [Unknown]
  - Drug prescribing error [Unknown]
  - Chromaturia [Unknown]
  - Stress [Unknown]
  - Hypotension [Unknown]

NARRATIVE: CASE EVENT DATE: 20111209
